FAERS Safety Report 8144587-4 (Version None)
Quarter: 2012Q1

REPORT INFORMATION
  Report Type: 
  Country: None (occurrence: None)
  Receive Date: 20120217
  Receipt Date: 20120203
  Transmission Date: 20120608
  Serious: Yes (Hospitalization)
  Sender: FDA-Public Use
  Company Number: US-WATSON-2012-01860

PATIENT
  Sex: Male

DRUGS (1)
  1. LORATADINE/PSEUDOEPHEDRINE SULFATE (WATSON LABORATORIES) [Suspect]
     Indication: SINUS CONGESTION
     Dosage: 1 TABLET EVERY OTHER DAY
     Route: 048
     Dates: start: 20111107, end: 20111109

REACTIONS (5)
  - URINE FLOW DECREASED [None]
  - CEREBROVASCULAR ACCIDENT [None]
  - HEMIPARESIS [None]
  - SENSATION OF HEAVINESS [None]
  - GAIT DISTURBANCE [None]
